FAERS Safety Report 19179065 (Version 2)
Quarter: 2021Q2

REPORT INFORMATION
  Report Type: Spontaneous
  Country: US (occurrence: US)
  Receive Date: 20210426
  Receipt Date: 20210426
  Transmission Date: 20210717
  Serious: Yes (Hospitalization)
  Sender: FDA-Public Use
  Company Number: US-CADILA HEALTHCARE LIMITED-US-ZYDUS-064971

PATIENT

DRUGS (5)
  1. LYSINE [Suspect]
     Active Substance: LYSINE
     Indication: SUPPLEMENTATION THERAPY
     Dosage: 1000 MILLIGRAM
     Route: 064
  2. SIROLIMUS. [Suspect]
     Active Substance: SIROLIMUS
     Dosage: UNK (TITRATION OF HER DAILY DOSE BETWEEN 6?10MG)
     Route: 064
  3. SIROLIMUS. [Suspect]
     Active Substance: SIROLIMUS
     Indication: FOETAL CARDIAC DISORDER
     Dosage: 10 MILLIGRAM (LOADING DOSE)
     Route: 064
  4. SIROLIMUS. [Suspect]
     Active Substance: SIROLIMUS
     Dosage: UNK (TITRATED TO A GOAL MATERNAL)
     Route: 064
  5. LEVOTHYROXINE. [Suspect]
     Active Substance: LEVOTHYROXINE
     Indication: HYPOTHYROIDISM
     Dosage: UNK
     Route: 064

REACTIONS (2)
  - Foetal growth restriction [Recovered/Resolved]
  - Foetal exposure during pregnancy [Recovered/Resolved]
